FAERS Safety Report 10034546 (Version 1)
Quarter: 2014Q1

REPORT INFORMATION
  Report Type: Spontaneous
  Country: FR (occurrence: FR)
  Receive Date: 20140325
  Receipt Date: 20140325
  Transmission Date: 20141002
  Serious: Yes (Other)
  Sender: FDA-Public Use
  Company Number: FR-ROCHE-1369081

PATIENT
  Age: 69 Year
  Sex: Male

DRUGS (5)
  1. MABTHERA [Suspect]
     Indication: B-CELL LYMPHOMA
     Route: 042
     Dates: start: 201105, end: 201312
  2. CYCLOPHOSPHAMIDE [Concomitant]
     Route: 065
     Dates: start: 201105, end: 201109
  3. DOXORUBICIN [Concomitant]
     Route: 065
     Dates: start: 201109
  4. VINCRISTINE [Concomitant]
     Route: 065
     Dates: start: 201105, end: 201109
  5. PREDNISOLONE [Concomitant]
     Route: 065
     Dates: start: 201105, end: 201109

REACTIONS (2)
  - Squamous cell carcinoma [Unknown]
  - Squamous cell carcinoma [Unknown]
